FAERS Safety Report 24285889 (Version 2)
Quarter: 2024Q3

REPORT INFORMATION
  Report Type: Spontaneous
  Country: NL (occurrence: NL)
  Receive Date: 20240905
  Receipt Date: 20240911
  Transmission Date: 20241017
  Serious: Yes (Life-Threatening, Disabling)
  Sender: AMGEN
  Company Number: NL-AMGEN-NLDSP2024175069

PATIENT
  Age: 62 Year
  Sex: Male
  Weight: 97 kg

DRUGS (7)
  1. REPATHA [Suspect]
     Active Substance: EVOLOCUMAB
     Indication: Hypercholesterolaemia
     Dosage: 1 X 14 DAYS
     Route: 065
     Dates: start: 20190101
  2. PANTOPRAZOLE [Concomitant]
     Active Substance: PANTOPRAZOLE
     Dosage: 40 MG
  3. CARBASPIRIN CALCIUM [Concomitant]
     Active Substance: CARBASPIRIN CALCIUM
     Dosage: BAG (POWDER) 600 MG (MILLIGRAM)
  4. EZETIMIBE [Concomitant]
     Active Substance: EZETIMIBE
     Dosage: 10MG
  5. ICOSAPENT ETHYL [Concomitant]
     Active Substance: ICOSAPENT ETHYL
     Dosage: CAPSULE, 998 MG (MILLIGRAM)
  6. INDAPAMIDE\PERINDOPRIL [Concomitant]
     Active Substance: INDAPAMIDE\PERINDOPRIL
     Dosage: TABLET, 2/0,625 MG (MILLIGRAM)
  7. BISOPROLOL [Concomitant]
     Active Substance: BISOPROLOL\BISOPROLOL FUMARATE
     Dosage: TABLET, 2,5 MG (MILLIGRAM)

REACTIONS (7)
  - Amnesia [Not Recovered/Not Resolved]
  - Fatigue [Not Recovered/Not Resolved]
  - Bradyphrenia [Not Recovered/Not Resolved]
  - Myalgia [Not Recovered/Not Resolved]
  - Speech disorder [Not Recovered/Not Resolved]
  - Depressed mood [Not Recovered/Not Resolved]
  - Symptom recurrence [Not Recovered/Not Resolved]
